FAERS Safety Report 6426340-2 (Version None)
Quarter: 2009Q4

REPORT INFORMATION
  Report Type: 
  Country: None (occurrence: None)
  Receive Date: 20091104
  Receipt Date: 20091023
  Transmission Date: 20100525
  Serious: Yes (Hospitalization)
  Sender: FDA-Public Use
  Company Number: US-AMGEN-US371190

PATIENT
  Age: 55 Year
  Sex: Male
  Weight: 90.3 kg

DRUGS (6)
  1. PROCRIT [Suspect]
     Route: 058
     Dates: start: 20090605, end: 20090925
  2. UNSPECIFIED ANTI-INFECTIVE AGENT [Suspect]
     Route: 048
     Dates: start: 20081222, end: 20090928
  3. PEGINTERFERON ALFA-2A [Suspect]
     Route: 058
     Dates: start: 20081113, end: 20090925
  4. RIBAVIRIN [Suspect]
     Route: 048
     Dates: start: 20081113, end: 20090928
  5. COMPAZINE [Concomitant]
  6. ZOFRAN [Concomitant]

REACTIONS (5)
  - ANAEMIA [None]
  - CHEST DISCOMFORT [None]
  - FATIGUE [None]
  - NEUTROPENIA [None]
  - SYNCOPE [None]
